FAERS Safety Report 8101167 (Version 2)
Quarter: 2012Q4

REPORT INFORMATION
  Report Type: 
  Country: US (occurrence: US)
  Receive Date: 20110823
  Receipt Date: 20120829
  Transmission Date: 20130627
  Serious: Yes (Other)
  Sender: FDA-Public Use
  Company Number: US-BIOGENIDEC-2011BI031388

PATIENT
  Age: 49 None
  Sex: Female

DRUGS (2)
  1. AVONEX [Suspect]
     Indication: MULTIPLE SCLEROSIS
     Route: 030
     Dates: start: 200306, end: 2003
  2. AVONEX [Suspect]
     Indication: MULTIPLE SCLEROSIS
     Route: 030
     Dates: start: 201107

REACTIONS (20)
  - Sepsis [Unknown]
  - Hypoaesthesia [Not Recovered/Not Resolved]
  - Injection site haemorrhage [Recovered/Resolved]
  - Oropharyngeal pain [Recovered/Resolved]
  - Tremor [Recovered/Resolved]
  - Fibromyalgia [Not Recovered/Not Resolved]
  - Gait disturbance [Not Recovered/Not Resolved]
  - Oedema peripheral [Not Recovered/Not Resolved]
  - Mental impairment [Not Recovered/Not Resolved]
  - Contusion [Recovered/Resolved]
  - Pain [Not Recovered/Not Resolved]
  - Insomnia [Not Recovered/Not Resolved]
  - Asthenia [Not Recovered/Not Resolved]
  - Paraesthesia [Recovered/Resolved]
  - Depression [Not Recovered/Not Resolved]
  - Injection site bruising [Recovered/Resolved]
  - Nausea [Recovered/Resolved]
  - Hyperhidrosis [Recovered/Resolved]
  - Fatigue [Not Recovered/Not Resolved]
  - Dyspnoea [Unknown]
